FAERS Safety Report 23974860 (Version 2)
Quarter: 2024Q3

REPORT INFORMATION
  Report Type: Spontaneous
  Country: US (occurrence: US)
  Receive Date: 20240614
  Receipt Date: 20240806
  Transmission Date: 20241016
  Serious: No
  Sender: ALVOGEN
  Company Number: US-ALVOGEN-2024094734

PATIENT
  Sex: Female

DRUGS (4)
  1. FENTANYL [Suspect]
     Active Substance: FENTANYL\FENTANYL CITRATE
     Indication: Product used for unknown indication
     Dosage: 75 MG*2 PATCHES?FIRST BOX (DISCARDED)
     Route: 062
  2. FENTANYL [Suspect]
     Active Substance: FENTANYL\FENTANYL CITRATE
     Indication: Product used for unknown indication
     Dosage: 75 MG*2 PATCHES?SECOND BOX (DISCARDED)
     Route: 062
  3. FENTANYL [Suspect]
     Active Substance: FENTANYL\FENTANYL CITRATE
     Indication: Product used for unknown indication
     Dosage: 75 MG*2 PATCHES?EXPIRATION DATE: UU-DEC-2026?CURRENT FIRST BOX
     Route: 062
  4. FENTANYL [Suspect]
     Active Substance: FENTANYL\FENTANYL CITRATE
     Indication: Product used for unknown indication
     Dosage: 75 MG*2 PATCHES?EXPIRATION DATE: UU-DEC-2026?CURRENT SECOND BOX
     Route: 062

REACTIONS (6)
  - Device malfunction [Unknown]
  - Device adhesion issue [Unknown]
  - Wrong technique in device usage process [Unknown]
  - Product use issue [Unknown]
  - Device issue [Unknown]
  - Incorrect dose administered [Unknown]
